FAERS Safety Report 25532372 (Version 1)
Quarter: 2025Q3

REPORT INFORMATION
  Report Type: Report from Study
  Country: AU (occurrence: AU)
  Receive Date: 20250709
  Receipt Date: 20250709
  Transmission Date: 20251020
  Serious: Yes (Death, Other)
  Sender: ROCHE
  Company Number: AU-ROCHE-10000329370

PATIENT

DRUGS (5)
  1. ATEZOLIZUMAB [Suspect]
     Active Substance: ATEZOLIZUMAB
     Indication: Neoplasm malignant
     Route: 065
  2. NIVOLUMAB [Suspect]
     Active Substance: NIVOLUMAB
     Indication: Neoplasm malignant
     Route: 065
  3. PEMBROLIZUMAB [Suspect]
     Active Substance: PEMBROLIZUMAB
     Indication: Neoplasm malignant
     Route: 065
  4. NELVUTAMIG [Suspect]
     Active Substance: NELVUTAMIG
     Indication: Neoplasm malignant
     Route: 065
  5. DURVALUMAB [Suspect]
     Active Substance: DURVALUMAB
     Indication: Neoplasm malignant
     Route: 065

REACTIONS (5)
  - Acute myocardial infarction [Fatal]
  - Myocardial injury [Unknown]
  - Pericarditis [Unknown]
  - Colitis [Unknown]
  - Cardiac disorder [Fatal]
